FAERS Safety Report 17204364 (Version 1)
Quarter: 2019Q4

REPORT INFORMATION
  Report Type: Report from Study
  Country: CA (occurrence: CA)
  Receive Date: 20191226
  Receipt Date: 20191226
  Transmission Date: 20200122
  Serious: Yes (Hospitalization)
  Sender: FDA-Public Use
  Company Number: CA-ACTELION-A-NJ2019-197245

PATIENT
  Age: 62 Year
  Sex: Female
  Weight: 59.41 kg

DRUGS (10)
  1. HYDROXYCHLOROQUINE [Concomitant]
     Active Substance: HYDROXYCHLOROQUINE
  2. ADCIRCA [Concomitant]
     Active Substance: TADALAFIL
  3. AMLODIPINE [Concomitant]
     Active Substance: AMLODIPINE BESYLATE
  4. TRAZODONE [Concomitant]
     Active Substance: TRAZODONE HYDROCHLORIDE
  5. URSODIOL. [Concomitant]
     Active Substance: URSODIOL
  6. TRAMADOL. [Concomitant]
     Active Substance: TRAMADOL
     Dosage: UNK, PRN
  7. OPSUMIT [Suspect]
     Active Substance: MACITENTAN
     Indication: PULMONARY ARTERIAL HYPERTENSION
     Dosage: 10 MG, QD
     Route: 048
     Dates: start: 20190925, end: 20191009
  8. AZATHIOPRINE. [Concomitant]
     Active Substance: AZATHIOPRINE
  9. WELLBUTRIN [Concomitant]
     Active Substance: BUPROPION HYDROCHLORIDE
  10. RAMIPRIL. [Concomitant]
     Active Substance: RAMIPRIL

REACTIONS (4)
  - Hospitalisation [Unknown]
  - Vomiting [Unknown]
  - Unevaluable event [Unknown]
  - Dizziness [Unknown]

NARRATIVE: CASE EVENT DATE: 20190925
